FAERS Safety Report 5194560-3 (Version None)
Quarter: 2006Q4

REPORT INFORMATION
  Report Type: 
  Country: None (occurrence: None)
  Receive Date: 20061221
  Receipt Date: 20061213
  Transmission Date: 20070319
  Serious: Yes (Hospitalization)
  Sender: FDA-Public Use
  Company Number: 8020839

PATIENT
  Age: 40 Year
  Weight: 86 kg

DRUGS (3)
  1. KEPPRA [Suspect]
     Indication: EPILEPSY
     Dosage: 1 G 2/D PO
     Route: 048
     Dates: start: 20020101, end: 20060101
  2. CARBAMAZEPINE [Concomitant]
  3. DIAZEPAM [Concomitant]

REACTIONS (1)
  - DELUSIONAL DISORDER, PERSECUTORY TYPE [None]
